FAERS Safety Report 7124055-9 (Version None)
Quarter: 2010Q4

REPORT INFORMATION
  Report Type: 
  Country: None (occurrence: None)
  Receive Date: 20101126
  Receipt Date: 20101116
  Transmission Date: 20110411
  Serious: Yes (Other)
  Sender: FDA-Public Use
  Company Number: CA-ELI_LILLY_AND_COMPANY-CA201011004497

PATIENT
  Age: 76 Year
  Sex: Male

DRUGS (8)
  1. FORTEO [Suspect]
     Indication: OSTEOPOROSIS
     Dosage: 20 UG, DAILY (1/D)
     Route: 058
     Dates: start: 20101006
  2. CARVEDILOL [Concomitant]
  3. FUROSEMIDE [Concomitant]
  4. RAMIPRIL [Concomitant]
  5. LORAZEPAM [Concomitant]
  6. ZOPICLONE [Concomitant]
  7. ADVAIR [Concomitant]
  8. SPIRIVA [Concomitant]

REACTIONS (2)
  - DIZZINESS [None]
  - LOSS OF CONSCIOUSNESS [None]
